FAERS Safety Report 18057728 (Version 2)
Quarter: 2020Q3

REPORT INFORMATION
  Report Type: Spontaneous
  Country: US (occurrence: US)
  Receive Date: 20200722
  Receipt Date: 20200826
  Transmission Date: 20201103
  Serious: No
  Sender: FDA-Public Use
  Company Number: US-ASTRAZENECA-2020SE90350

PATIENT
  Age: 918 Month
  Sex: Female
  Weight: 59 kg

DRUGS (2)
  1. BEVESPI AEROSPHERE [Suspect]
     Active Substance: FORMOTEROL FUMARATE\GLYCOPYRROLATE
     Indication: CHRONIC OBSTRUCTIVE PULMONARY DISEASE
     Dosage: 9MCG/4.8MCG, UNKNOWN UNKNOWN
     Route: 055
     Dates: start: 202003
  2. BEVESPI AEROSPHERE [Suspect]
     Active Substance: FORMOTEROL FUMARATE\GLYCOPYRROLATE
     Indication: EMPHYSEMA
     Dosage: 9MCG/4.8MCG, UNKNOWN UNKNOWN
     Route: 055
     Dates: start: 202003

REACTIONS (3)
  - Paranoia [Unknown]
  - Intentional device misuse [Unknown]
  - Device occlusion [Unknown]
